FAERS Safety Report 5474981-1 (Version None)
Quarter: 2007Q3

REPORT INFORMATION
  Report Type: 
  Country: None (occurrence: None)
  Receive Date: 20070831
  Receipt Date: 20070404
  Transmission Date: 20080115
  Serious: Yes (Other)
  Sender: FDA-Public Use
  Company Number: 239437

PATIENT
  Sex: Female

DRUGS (3)
  1. LUCENTIS [Suspect]
     Indication: DRUG USE FOR UNKNOWN INDICATION
     Dates: start: 20060701
  2. ANTIHYPERTENSIVE DRUG NOS (ANTIHYPERTENSIVE NOS) [Concomitant]
  3. THYROID DRUG NOS (THYROID DRUG NOS) [Concomitant]

REACTIONS (1)
  - RETINAL DETACHMENT [None]
